FAERS Safety Report 6188053-4 (Version None)
Quarter: 2009Q2

REPORT INFORMATION
  Report Type: 
  Country: None (occurrence: None)
  Receive Date: 20090513
  Receipt Date: 20090504
  Transmission Date: 20091009
  Serious: Yes (Hospitalization, Disabling, Other)
  Sender: FDA-Public Use
  Company Number: PHHY2009BR17308

PATIENT
  Age: 73 Year
  Sex: Female
  Weight: 73 kg

DRUGS (2)
  1. DIOVAN HCT [Suspect]
     Indication: HYPERTENSION
     Dosage: 1 TABLET DAILY
     Route: 048
     Dates: start: 19990501
  2. PURAN T4 [Concomitant]
     Indication: HYPOTHYROIDISM
     Dosage: ONE TABLET DAILY
     Route: 048
     Dates: start: 19870101

REACTIONS (10)
  - ANGIOPLASTY [None]
  - ARRHYTHMIA [None]
  - CATARACT [None]
  - CORONARY ARTERIAL STENT INSERTION [None]
  - CORONARY ARTERY OCCLUSION [None]
  - GLAUCOMA [None]
  - GLAUCOMA SURGERY [None]
  - INSULIN RESISTANCE [None]
  - POST PROCEDURAL COMPLICATION [None]
  - VISUAL ACUITY REDUCED [None]
